FAERS Safety Report 7769043-4 (Version None)
Quarter: 2011Q3

REPORT INFORMATION
  Report Type: 
  Country: None (occurrence: None)
  Receive Date: 20110922
  Receipt Date: 20101201
  Transmission Date: 20111222
  Serious: No
  Sender: FDA-Public Use
  Company Number: US-ASTRAZENECA-2010SE56929

PATIENT
  Age: 66 Year
  Sex: Female
  Weight: 102.5 kg

DRUGS (4)
  1. SEROQUEL [Suspect]
     Indication: SLEEP DISORDER
     Route: 048
     Dates: start: 20080101, end: 20100101
  2. SEROQUEL [Suspect]
     Route: 048
     Dates: start: 20101008, end: 20101108
  3. SEROQUEL [Suspect]
     Indication: BIPOLAR DISORDER
     Route: 048
     Dates: start: 20080101, end: 20100101
  4. SEROQUEL [Suspect]
     Route: 048
     Dates: start: 20101008, end: 20101108

REACTIONS (3)
  - DRUG DOSE OMISSION [None]
  - INSOMNIA [None]
  - DEPRESSION [None]
